FAERS Safety Report 21417852 (Version 1)
Quarter: 2022Q4

REPORT INFORMATION
  Report Type: Spontaneous
  Country: CN (occurrence: CN)
  Receive Date: 20221006
  Receipt Date: 20221006
  Transmission Date: 20230112
  Serious: Yes (Hospitalization)
  Sender: FDA-Public Use
  Company Number: CN-ELI_LILLY_AND_COMPANY-CN202210001068

PATIENT
  Sex: Male
  Weight: 90 kg

DRUGS (4)
  1. HUMULIN R [Suspect]
     Active Substance: INSULIN HUMAN
     Indication: Diabetes mellitus
     Dosage: 8 U, EACH MORNING
     Route: 058
     Dates: start: 2004, end: 20220923
  2. HUMULIN R [Suspect]
     Active Substance: INSULIN HUMAN
     Dosage: 10 U, DAILY AT NOON
     Route: 058
     Dates: start: 2004, end: 20220923
  3. HUMULIN R [Suspect]
     Active Substance: INSULIN HUMAN
     Dosage: 14 U, DAILY AT THE EVENING
     Route: 058
     Dates: start: 2004, end: 20220923
  4. HUMULIN R [Suspect]
     Active Substance: INSULIN HUMAN
     Dosage: 16 U, DAILY AT NIGHT
     Route: 058
     Dates: start: 2004, end: 20220923

REACTIONS (1)
  - Blood glucose increased [Unknown]
